FAERS Safety Report 24883189 (Version 1)
Quarter: 2025Q1

REPORT INFORMATION
  Report Type: Spontaneous
  Country: CN (occurrence: CN)
  Receive Date: 20250124
  Receipt Date: 20250124
  Transmission Date: 20250408
  Serious: Yes (Hospitalization)
  Sender: JOHNSON AND JOHNSON
  Company Number: CN-JNJFOC-20250157667

PATIENT
  Age: 55 Year
  Sex: Male
  Weight: 51 kg

DRUGS (3)
  1. EDURANT [Suspect]
     Active Substance: RILPIVIRINE HYDROCHLORIDE
     Indication: Acquired immunodeficiency syndrome
     Route: 048
     Dates: start: 20241226, end: 20250105
  2. LAMIVUDINE [Concomitant]
     Active Substance: LAMIVUDINE
     Indication: Acquired immunodeficiency syndrome
  3. TENOFOVIR [Concomitant]
     Active Substance: TENOFOVIR
     Indication: Acquired immunodeficiency syndrome

REACTIONS (1)
  - Drug eruption [Recovering/Resolving]

NARRATIVE: CASE EVENT DATE: 20241230
